FAERS Safety Report 7402321-7 (Version None)
Quarter: 2011Q1

REPORT INFORMATION
  Report Type: 
  Country: None (occurrence: None)
  Receive Date: 20110331
  Receipt Date: 20110317
  Transmission Date: 20110831
  Serious: Yes (Other)
  Sender: FDA-Public Use
  Company Number: 2011MA002556

PATIENT
  Age: 64 Year
  Sex: Male

DRUGS (6)
  1. METFORMIN HYDROCHLORIDE [Suspect]
     Indication: TYPE 2 DIABETES MELLITUS
     Dates: start: 20040101
  2. HJERTEMAGNYL ^DAK^ [Concomitant]
  3. (AELLC) [Concomitant]
  4. RAMIPRIL [Concomitant]
  5. PRAVASTATIN [Concomitant]
  6. AMARYL [Concomitant]

REACTIONS (4)
  - LOSS OF CONSCIOUSNESS [None]
  - ALCOHOL USE [None]
  - TREATMENT NONCOMPLIANCE [None]
  - CONVULSION [None]
